FAERS Safety Report 22086972 (Version 2)
Quarter: 2023Q1

REPORT INFORMATION
  Report Type: Spontaneous
  Country: JP (occurrence: JP)
  Receive Date: 20230313
  Receipt Date: 20230316
  Transmission Date: 20230418
  Serious: Yes (Other)
  Sender: FDA-Public Use
  Company Number: JP-LEO Pharma-348590

PATIENT
  Age: 88 Year
  Sex: Male

DRUGS (1)
  1. ENSTILAR [Suspect]
     Active Substance: BETAMETHASONE DIPROPIONATE\CALCIPOTRIENE HYDRATE
     Indication: Product used for unknown indication
     Dosage: UNKNOWN
     Route: 003

REACTIONS (3)
  - Altered state of consciousness [Recovered/Resolved]
  - Movement disorder [Recovered/Resolved]
  - Hypercalcaemia [Recovered/Resolved]
